FAERS Safety Report 8115299-8 (Version None)
Quarter: 2012Q1

REPORT INFORMATION
  Report Type: 
  Country: None (occurrence: None)
  Receive Date: 20120206
  Receipt Date: 20120124
  Transmission Date: 20120608
  Serious: Yes (Other)
  Sender: FDA-Public Use
  Company Number: US-ENDO PHARMACEUTICALS INC.-PROP20120011

PATIENT
  Sex: Female

DRUGS (1)
  1. PROPOXYPHENE NAPSYLATE W/ ACETAMINOPHEN [Suspect]
     Indication: PAIN MANAGEMENT
     Dosage: UNKNOWN
     Route: 048

REACTIONS (5)
  - MITRAL VALVE INCOMPETENCE [None]
  - ARTERIOSCLEROSIS [None]
  - DIASTOLIC DYSFUNCTION [None]
  - AORTIC VALVE INCOMPETENCE [None]
  - CARDIO-RESPIRATORY ARREST [None]
